FAERS Safety Report 4829616-5 (Version None)
Quarter: 2005Q4

REPORT INFORMATION
  Report Type: 
  Country: None (occurrence: None)
  Receive Date: 20051027
  Receipt Date: 20050625
  Transmission Date: 20060501
  Serious: Yes (Other)
  Sender: FDA-Public Use
  Company Number: 200515391US

PATIENT

DRUGS (3)
  1. ARAVA [Suspect]
     Dosage: 20 MG
  2. HYDROXYCHLOROQUINE SULFATE (PLAQUENIL) [Concomitant]
  3. CELEBREX [Concomitant]

REACTIONS (5)
  - BLOOD URIC ACID DECREASED [None]
  - THYROID FUNCTION TEST ABNORMAL [None]
  - THYROXINE DECREASED [None]
  - TRI-IODOTHYRONINE UPTAKE DECREASED [None]
  - WHITE BLOOD CELL COUNT DECREASED [None]
